FAERS Safety Report 12610241 (Version 1)
Quarter: 2016Q3

REPORT INFORMATION
  Report Type: Spontaneous
  Country: GB (occurrence: GB)
  Receive Date: 20160801
  Receipt Date: 20160801
  Transmission Date: 20161109
  Serious: Yes (Death, Other)
  Sender: FDA-Public Use
  Company Number: GB-ASTRAZENECA-2016SE80547

PATIENT
  Age: 73 Year
  Sex: Male

DRUGS (3)
  1. MEROPENEM. [Suspect]
     Active Substance: MEROPENEM
     Indication: SEPSIS
     Dosage: 1.0G UNKNOWN
     Route: 042
     Dates: start: 20160718, end: 20160718
  2. HYDROCORTISONE. [Concomitant]
     Active Substance: HYDROCORTISONE
  3. XARELTO [Concomitant]
     Active Substance: RIVAROXABAN

REACTIONS (4)
  - Dysgeusia [Unknown]
  - Contraindicated product administered [Unknown]
  - Nausea [Unknown]
  - Cardiac arrest [Fatal]

NARRATIVE: CASE EVENT DATE: 20160718
